FAERS Safety Report 5917808-3 (Version None)
Quarter: 2008Q4

REPORT INFORMATION
  Report Type: 
  Country: None (occurrence: None)
  Receive Date: 20081009
  Receipt Date: 20080930
  Transmission Date: 20090506
  Serious: Yes (Other)
  Sender: FDA-Public Use
  Company Number: FABR-1000306

PATIENT
  Age: 43 Year
  Sex: Male
  Weight: 50 kg

DRUGS (11)
  1. FABRAZYME [Suspect]
     Indication: FABRY'S DISEASE
     Dosage: 70 MG,; 35 MG,
  2. MORPHINE [Suspect]
     Indication: DRUG USE FOR UNKNOWN INDICATION
     Dates: start: 20080917, end: 20080917
  3. ANTIHISTAMINES [Concomitant]
  4. ACETAMINOPHEN [Concomitant]
  5. ERYTHROPOIETIN (ERYTHROPOIETIN) [Concomitant]
  6. SEVELAMER (SEVELAMER) [Concomitant]
  7. CALCIUM CARBONATE (CALCIUM CARBONATE) [Concomitant]
  8. DILITAZEN [Concomitant]
  9. ASPIRIN [Concomitant]
  10. POLARAMINE [Concomitant]
  11. DIPYRONE (METAMIZOLE SODIUM) [Concomitant]

REACTIONS (7)
  - DYSPNOEA [None]
  - LARYNGOSPASM [None]
  - MALAISE [None]
  - NAUSEA [None]
  - PRURITUS [None]
  - SWOLLEN TONGUE [None]
  - TACHYCARDIA [None]
